FAERS Safety Report 20874199 (Version 1)
Quarter: 2022Q2

REPORT INFORMATION
  Report Type: Spontaneous
  Country: US (occurrence: None)
  Receive Date: 20220525
  Receipt Date: 20220525
  Transmission Date: 20220720
  Serious: Yes (Other)
  Sender: FDA-Public Use
  Company Number: None

PATIENT
  Age: 32 Year
  Sex: Male
  Weight: 65.32 kg

DRUGS (10)
  1. AUSTEDO [Suspect]
     Active Substance: DEUTETRABENAZINE
     Indication: Tardive dyskinesia
     Dates: start: 20220520, end: 20220524
  2. DIVALPROEX SODIUM [Concomitant]
     Active Substance: DIVALPROEX SODIUM
  3. LORATADINE [Concomitant]
     Active Substance: LORATADINE
  4. IMIPRAMINE [Concomitant]
     Active Substance: IMIPRAMINE
  5. ESOMEPRAZOLE [Concomitant]
     Active Substance: ESOMEPRAZOLE
  6. PALIPERIDONE [Concomitant]
     Active Substance: PALIPERIDONE
  7. HYDROXYZINE [Concomitant]
     Active Substance: HYDROXYZINE HYDROCHLORIDE
  8. HALOPERIDOL [Concomitant]
     Active Substance: HALOPERIDOL
  9. QUETIAPINE [Concomitant]
     Active Substance: QUETIAPINE
  10. SERTRALINE [Concomitant]
     Active Substance: SERTRALINE HYDROCHLORIDE

REACTIONS (3)
  - Blood pressure increased [None]
  - Discomfort [None]
  - Irritability [None]

NARRATIVE: CASE EVENT DATE: 20220520
